FAERS Safety Report 13754385 (Version 2)
Quarter: 2017Q4

REPORT INFORMATION
  Report Type: Spontaneous
  Country: BR (occurrence: BR)
  Receive Date: 20170714
  Receipt Date: 20171013
  Transmission Date: 20180320
  Serious: Yes (Death, Hospitalization, Other)
  Sender: FDA-Public Use
  Company Number: BR-B.I. PHARMACEUTICALS,INC./RIDGEFIELD-2017-BI-038373

PATIENT
  Age: 89 Year
  Sex: Female
  Weight: 52 kg

DRUGS (7)
  1. SERTRALINE [Concomitant]
     Active Substance: SERTRALINE HYDROCHLORIDE
     Indication: DEMENTIA ALZHEIMER^S TYPE
     Route: 048
     Dates: end: 20170730
  2. ATENOLOL. [Concomitant]
     Active Substance: ATENOLOL
     Indication: ARRHYTHMIA
     Route: 048
  3. GLIFAGE XR [Concomitant]
     Active Substance: METFORMIN HYDROCHLORIDE
     Indication: DIABETES MELLITUS
     Route: 048
     Dates: end: 20170730
  4. INSULINA HUMANA [Concomitant]
     Indication: DIABETES MELLITUS
     Dosage: FREQUENCY TEXT: NOT REPORTED
     Route: 065
     Dates: end: 20170730
  5. RECALM [Concomitant]
     Indication: PRODUCT USED FOR UNKNOWN INDICATION
     Route: 048
     Dates: end: 20170710
  6. PRADAXA [Suspect]
     Active Substance: DABIGATRAN ETEXILATE MESYLATE
     Indication: CEREBROVASCULAR ACCIDENT PROPHYLAXIS
     Dosage: FREQUENCY TEXT: AT 9 A.M. AND 9 P.M.
     Route: 065
     Dates: end: 20170712
  7. SINTOCALMY [Concomitant]
     Indication: PRODUCT USED FOR UNKNOWN INDICATION
     Route: 048
     Dates: end: 20170710

REACTIONS (13)
  - Speech disorder [Fatal]
  - Decubitus ulcer [Fatal]
  - Respiratory depression [Fatal]
  - Wrong technique in product usage process [Recovered/Resolved]
  - Chromaturia [Fatal]
  - Pain in extremity [Fatal]
  - Ischaemic stroke [Fatal]
  - Transient ischaemic attack [Recovered/Resolved]
  - Wrong technique in product usage process [Recovered/Resolved]
  - Product use complaint [Fatal]
  - Urinary tract infection [Fatal]
  - Blood pressure measurement [Fatal]
  - Blood glucose increased [Fatal]

NARRATIVE: CASE EVENT DATE: 20170706
